FAERS Safety Report 9138147 (Version 1)
Quarter: 2013Q1

REPORT INFORMATION
  Report Type: Spontaneous
  Country: US (occurrence: US)
  Receive Date: 20130304
  Receipt Date: 20130304
  Transmission Date: 20140127
  Serious: No
  Sender: FDA-Public Use
  Company Number: US-009507513-1302USA012895

PATIENT
  Age: 44 Year
  Sex: Female

DRUGS (1)
  1. CLARINEX-D-12 [Suspect]
     Indication: HYPERSENSITIVITY
     Dosage: UNK, BID
     Route: 048
     Dates: start: 201212

REACTIONS (1)
  - Drug ineffective [Unknown]
